FAERS Safety Report 24960633 (Version 2)
Quarter: 2025Q3

REPORT INFORMATION
  Report Type: Report from Study
  Country: US (occurrence: US)
  Receive Date: 20250212
  Receipt Date: 20250810
  Transmission Date: 20251020
  Serious: Yes (Other)
  Sender: ALEXION PHARMACEUTICALS
  Company Number: US-ASTRAZENECA-202502USA006246US

PATIENT
  Age: 6 Year
  Sex: Female

DRUGS (1)
  1. STRENSIQ [Suspect]
     Active Substance: ASFOTASE ALFA
     Route: 065

REACTIONS (6)
  - Autism spectrum disorder [Unknown]
  - Attention deficit hyperactivity disorder [Unknown]
  - Injection site reaction [Unknown]
  - Urinary tract infection [Unknown]
  - Eating disorder symptom [Unknown]
  - Joint laxity [Unknown]

NARRATIVE: CASE EVENT DATE: 20241024
